FAERS Safety Report 24813915 (Version 1)
Quarter: 2025Q1

REPORT INFORMATION
  Report Type: Spontaneous
  Country: GB (occurrence: GB)
  Receive Date: 20250107
  Receipt Date: 20250107
  Transmission Date: 20250409
  Serious: Yes (Hospitalization, Other)
  Sender: TEVA
  Company Number: GB-009507513-2411GBR000884

PATIENT
  Age: 51 Year
  Sex: Female

DRUGS (3)
  1. PACLITAXEL [Suspect]
     Active Substance: PACLITAXEL
     Indication: Triple negative breast cancer
     Dosage: 80 MG/M2 EVERY 7 DAYS
     Route: 042
     Dates: start: 20240419, end: 20240707
  2. PEMBROLIZUMAB [Suspect]
     Active Substance: PEMBROLIZUMAB
     Indication: Triple negative breast cancer
     Dosage: 200 MILLIGRAM, EVERY 21 DAYS (Q3W)
     Route: 065
     Dates: start: 20240419, end: 20240510
  3. CARBOPLATIN [Concomitant]
     Active Substance: CARBOPLATIN
     Indication: Triple negative breast cancer
     Dosage: AUC 5, EVERY 21 DAYS
     Route: 042
     Dates: start: 20240419, end: 20240707

REACTIONS (5)
  - Hypothyroidism [Unknown]
  - Immune-mediated hepatitis [Recovering/Resolving]
  - Immune-mediated enterocolitis [Recovered/Resolved]
  - Steroid diabetes [Unknown]
  - Immune-mediated hyperthyroidism [Not Recovered/Not Resolved]

NARRATIVE: CASE EVENT DATE: 20240101
